FAERS Safety Report 9572487 (Version 2)
Quarter: 2013Q4

REPORT INFORMATION
  Report Type: Spontaneous
  Country: US (occurrence: US)
  Receive Date: 20131001
  Receipt Date: 20131001
  Transmission Date: 20140711
  Serious: Yes (Hospitalization)
  Sender: FDA-Public Use
  Company Number: US-NAPPMUNDI-USA-2012-0080650

PATIENT
  Age: 44 Year
  Sex: Female
  Weight: 42.63 kg

DRUGS (2)
  1. BUTRANS [Suspect]
     Indication: MUSCLE STRAIN
     Dosage: 10 MCG, Q1H
     Route: 062
     Dates: start: 20110726, end: 20111128
  2. VOLTAREN                           /00372301/ [Concomitant]
     Indication: MUSCLE STRAIN
     Dosage: 75 MG, BID
     Dates: start: 20110927, end: 20111128

REACTIONS (3)
  - Chest pain [Recovered/Resolved]
  - Syncope [Recovered/Resolved]
  - Dizziness [Recovered/Resolved]
